FAERS Safety Report 18581404 (Version 2)
Quarter: 2021Q3

REPORT INFORMATION
  Report Type: Spontaneous
  Country: CO (occurrence: CO)
  Receive Date: 20201204
  Receipt Date: 20210706
  Transmission Date: 20211014
  Serious: Yes (Other)
  Sender: FDA-Public Use
  Company Number: CO-EMD SERONO-9202039

PATIENT
  Age: 35 Year
  Sex: Female
  Weight: 103 kg

DRUGS (9)
  1. SERTRALINE [Suspect]
     Active Substance: SERTRALINE HYDROCHLORIDE
     Indication: ANXIETY
  2. COSENTYX [Suspect]
     Active Substance: SECUKINUMAB
     Indication: ANKYLOSING SPONDYLITIS
     Route: 058
     Dates: start: 20180928, end: 202008
  3. COSENTYX [Suspect]
     Active Substance: SECUKINUMAB
     Dosage: DEVICE? PRE FILLED SYRINGE
     Route: 058
     Dates: start: 20201107
  4. QUETIAPINE. [Concomitant]
     Active Substance: QUETIAPINE
     Indication: PRODUCT USED FOR UNKNOWN INDICATION
  5. ENALAPRIL [Concomitant]
     Active Substance: ENALAPRIL
     Indication: PRODUCT USED FOR UNKNOWN INDICATION
  6. METFORMIN [Suspect]
     Active Substance: METFORMIN HYDROCHLORIDE
     Indication: GLUCOSE TOLERANCE IMPAIRED
  7. SERTRALINE [Suspect]
     Active Substance: SERTRALINE HYDROCHLORIDE
     Indication: DEPRESSION
     Route: 048
  8. COSENTYX [Suspect]
     Active Substance: SECUKINUMAB
     Route: 058
  9. LEVOTHYROXINE. [Concomitant]
     Active Substance: LEVOTHYROXINE
     Indication: PRODUCT USED FOR UNKNOWN INDICATION

REACTIONS (13)
  - Synovial cyst [Unknown]
  - Pain [Unknown]
  - Drug ineffective [Unknown]
  - Back pain [Unknown]
  - Arthralgia [Unknown]
  - Headache [Unknown]
  - Dysstasia [Unknown]
  - Thyroid cancer [Unknown]
  - Gait inability [Unknown]
  - Pain in extremity [Unknown]
  - Thyroid cancer recurrent [Unknown]
  - Renal failure [Unknown]
  - Muscle spasms [Unknown]

NARRATIVE: CASE EVENT DATE: 202005
